FAERS Safety Report 11296948 (Version 1)
Quarter: 2015Q3

REPORT INFORMATION
  Report Type: Spontaneous
  Country: US (occurrence: US)
  Receive Date: 20150722
  Receipt Date: 20150722
  Transmission Date: 20151125
  Serious: No
  Sender: FDA-Public Use
  Company Number: US-ELI_LILLY_AND_COMPANY-US201011006120

PATIENT
  Sex: Male

DRUGS (5)
  1. TEKTURNA [Concomitant]
     Active Substance: ALISKIREN HEMIFUMARATE
     Dosage: 300 MG, DAILY (1/D)
  2. ASMANEX [Concomitant]
     Active Substance: MOMETASONE FUROATE
  3. EFFIENT [Suspect]
     Active Substance: PRASUGREL HYDROCHLORIDE
     Indication: STENT PLACEMENT
     Dosage: 5 MG, DAILY (1/D)
     Route: 065
     Dates: start: 2010
  4. CLONIDINE. [Concomitant]
     Active Substance: CLONIDINE
     Dosage: 0.1 MG, UNK
     Dates: start: 201011
  5. FORADIL /USA/ [Concomitant]

REACTIONS (5)
  - Wheezing [Unknown]
  - Balance disorder [Unknown]
  - Chest discomfort [Unknown]
  - Abdominal discomfort [Unknown]
  - Dizziness [Unknown]

NARRATIVE: CASE EVENT DATE: 201011
